FAERS Safety Report 9377516 (Version 1)
Quarter: 2013Q3

REPORT INFORMATION
  Report Type: Spontaneous
  Country: US (occurrence: US)
  Receive Date: 20130701
  Receipt Date: 20130701
  Transmission Date: 20140515
  Serious: No
  Sender: FDA-Public Use
  Company Number: US-BAYER-2013-080354

PATIENT
  Sex: Female

DRUGS (2)
  1. ALEVE LIQUID GELS [Suspect]
     Indication: DYSMENORRHOEA
     Dosage: UNK
     Route: 048
  2. ALEVE GELCAPS [Suspect]
     Dosage: UNK

REACTIONS (2)
  - Drug ineffective [None]
  - Drug ineffective [None]
